FAERS Safety Report 9729773 (Version 1)
Quarter: 2013Q4

REPORT INFORMATION
  Report Type: Spontaneous
  Country: US (occurrence: US)
  Receive Date: 20131204
  Receipt Date: 20131204
  Transmission Date: 20140711
  Serious: No
  Sender: FDA-Public Use
  Company Number: US-GILEAD-2009-0022469

PATIENT
  Sex: Female
  Weight: 90.72 kg

DRUGS (13)
  1. LETAIRIS [Suspect]
     Indication: PULMONARY ARTERIAL HYPERTENSION
     Route: 048
     Dates: start: 20071228
  2. REPLIVA [Concomitant]
  3. ADVAIR [Concomitant]
  4. LASIX [Concomitant]
  5. PREMARIN [Concomitant]
  6. MELOXICAM [Concomitant]
  7. SYNTHROID [Concomitant]
  8. METFORMIN [Concomitant]
  9. PRILOSEC [Concomitant]
  10. DILTIAZEM HCL [Concomitant]
  11. POTASSIUM [Concomitant]
  12. TRAMADOL [Concomitant]
  13. BONIVA [Concomitant]

REACTIONS (2)
  - Immune system disorder [Unknown]
  - Sinusitis [Unknown]
